FAERS Safety Report 17550296 (Version 5)
Quarter: 2020Q3

REPORT INFORMATION
  Report Type: Report from Study
  Country: US (occurrence: US)
  Receive Date: 20200317
  Receipt Date: 20200820
  Transmission Date: 20201102
  Serious: No
  Sender: FDA-Public Use
  Company Number: NVSC2020US076223

PATIENT
  Sex: Female

DRUGS (1)
  1. MAYZENT [Suspect]
     Active Substance: SIPONIMOD
     Indication: PRODUCT USED FOR UNKNOWN INDICATION
     Dosage: 2 MG
     Route: 065

REACTIONS (6)
  - Cough [Unknown]
  - Balance disorder [Unknown]
  - Weight decreased [Unknown]
  - Movement disorder [Unknown]
  - Drug ineffective [Unknown]
  - Headache [Recovered/Resolved]
